FAERS Safety Report 8528697 (Version 3)
Quarter: 2013Q1

REPORT INFORMATION
  Report Type: Report from Study
  Country: CN (occurrence: CN)
  Receive Date: 20120425
  Receipt Date: 20130326
  Transmission Date: 20140127
  Serious: Yes (Hospitalization)
  Sender: FDA-Public Use
  Company Number: CN-BRISTOL-MYERS SQUIBB COMPANY-16545931

PATIENT
  Age: 57 Year
  Sex: Male

DRUGS (1)
  1. DASATINIB [Suspect]
     Indication: CHRONIC MYELOID LEUKAEMIA
     Dosage: 19NV-16DC07,17DE-23DE,24DC-2JA8,3-22JN08,23-27JN08,28JN-4MR,5MR8-11MR,12MR-7AP,8AP-5MY08,6MY-23JU08
     Route: 048
     Dates: start: 20071119

REACTIONS (1)
  - Duodenal perforation [Recovered/Resolved]
